FAERS Safety Report 10058879 (Version 2)
Quarter: 2014Q2

REPORT INFORMATION
  Report Type: Spontaneous
  Country: CA (occurrence: CA)
  Receive Date: 20140404
  Receipt Date: 20140416
  Transmission Date: 20141212
  Serious: Yes (Other)
  Sender: FDA-Public Use
  Company Number: CA-ASTRAZENECA-2014SE21900

PATIENT
  Age: 32 Year
  Sex: Male

DRUGS (4)
  1. SEROQUEL [Suspect]
     Indication: SLEEP DISORDER THERAPY
     Route: 048
  2. ANTIPSYCHOTIC MEDICATION [Concomitant]
  3. DRUG TYPICALLY USED FOR DEPRESSION OR ANXIETY [Concomitant]
  4. REDUCES THE PRODUCTION OF STOMACH ACID [Concomitant]

REACTIONS (1)
  - Homicide [Unknown]
